FAERS Safety Report 15171101 (Version 2)
Quarter: 2018Q3

REPORT INFORMATION
  Report Type: Spontaneous
  Country: IT (occurrence: IT)
  Receive Date: 20180720
  Receipt Date: 20180828
  Transmission Date: 20181010
  Serious: Yes (Life-Threatening)
  Sender: FDA-Public Use
  Company Number: IT-PFIZER INC-2018292574

PATIENT
  Age: 65 Year
  Sex: Female

DRUGS (4)
  1. CEFAZOLIN [Suspect]
     Active Substance: CEFAZOLIN
     Dosage: 2 G, SINGLE
     Route: 042
  2. PROPOFOL. [Concomitant]
     Active Substance: PROPOFOL
     Indication: INDUCTION OF ANAESTHESIA
     Dosage: 140 MG, UNK
     Route: 041
  3. ROCURONIUM BROMIDE. [Concomitant]
     Active Substance: ROCURONIUM BROMIDE
     Dosage: 30 MG, UNK
     Route: 042
  4. REMIFENTANIL [Concomitant]
     Active Substance: REMIFENTANIL
     Dosage: UNK
     Route: 041

REACTIONS (3)
  - Oedema [Recovered/Resolved]
  - Bronchospasm [Recovered/Resolved]
  - Hypotension [Recovered/Resolved]

NARRATIVE: CASE EVENT DATE: 20180625
